FAERS Safety Report 10451145 (Version 1)
Quarter: 2014Q3

REPORT INFORMATION
  Report Type: Spontaneous
  Country: US (occurrence: US)
  Receive Date: 20140912
  Receipt Date: 20140912
  Transmission Date: 20150326
  Serious: Yes (Hospitalization)
  Sender: FDA-Public Use
  Company Number: US-TAKEDA-2014TUS008496

PATIENT
  Age: 48 Year
  Sex: Male

DRUGS (5)
  1. PHENYLBUTAZONE [Concomitant]
     Active Substance: PHENYLBUTAZONE
  2. PROBENECID. [Concomitant]
     Active Substance: PROBENECID
     Indication: GOUTY ARTHRITIS
     Dosage: 1 G, BID
  3. COLCHICINE. [Suspect]
     Active Substance: COLCHICINE
     Indication: GOUTY ARTHRITIS
     Dosage: 1 MG, QD
     Route: 065
     Dates: start: 1955, end: 1956
  4. COLCHICINE. [Suspect]
     Active Substance: COLCHICINE
     Dosage: 8.5 MG, QD
  5. COLCHICINE. [Suspect]
     Active Substance: COLCHICINE
     Dosage: 0.5 MG, TID
     Dates: start: 1956

REACTIONS (2)
  - Toxicity to various agents [Recovered/Resolved]
  - Myopathy [Recovered/Resolved]
